FAERS Safety Report 23859605 (Version 1)
Quarter: 2024Q2

REPORT INFORMATION
  Report Type: Spontaneous
  Country: US (occurrence: None)
  Receive Date: 20240515
  Receipt Date: 20240515
  Transmission Date: 20240715
  Serious: Yes (Other)
  Sender: FDA-Public Use
  Company Number: None

PATIENT
  Age: 43 Year
  Sex: Female
  Weight: 95.1 kg

DRUGS (5)
  1. INFED [Suspect]
     Active Substance: IRON DEXTRAN
     Indication: Iron deficiency anaemia
     Dosage: OTHER FREQUENCY : ONCE;?
     Route: 042
     Dates: start: 20240509, end: 20240509
  2. Alprazolam 0.5 mg PO BID [Concomitant]
  3. Asmanex HFA 200 mcg 2 puffs BID [Concomitant]
  4. Linzess 145 mcg PO daily [Concomitant]
  5. Wegovy 0.5 mg SQ weekly [Concomitant]

REACTIONS (4)
  - Throat irritation [None]
  - Nasal discomfort [None]
  - Throat irritation [None]
  - Nasal pruritus [None]

NARRATIVE: CASE EVENT DATE: 20240509
